FAERS Safety Report 14236740 (Version 1)
Quarter: 2017Q4

REPORT INFORMATION
  Report Type: Spontaneous
  Country: US (occurrence: US)
  Receive Date: 20171129
  Receipt Date: 20171129
  Transmission Date: 20180321
  Serious: No
  Sender: FDA-Public Use
  Company Number: US-ASTRAZENECA-2017SF19095

PATIENT
  Sex: Female

DRUGS (1)
  1. SYMBICORT [Suspect]
     Active Substance: BUDESONIDE\FORMOTEROL FUMARATE DIHYDRATE
     Dosage: 160/4.5 MCG, UNKNOWN UNKNOWN
     Route: 055

REACTIONS (8)
  - Malaise [Unknown]
  - Dyspnoea [Unknown]
  - Intentional device misuse [Unknown]
  - Product quality issue [Unknown]
  - Dysphonia [Unknown]
  - Feeling abnormal [Unknown]
  - Asthma [Unknown]
  - Drug dose omission [Unknown]
